FAERS Safety Report 4933203-8 (Version None)
Quarter: 2006Q1

REPORT INFORMATION
  Report Type: 
  Country: None (occurrence: None)
  Receive Date: 20060306
  Receipt Date: 20030121
  Transmission Date: 20060701
  Serious: Yes (Life-Threatening, Hospitalization, Other)
  Sender: FDA-Public Use
  Company Number: US-MERCK-0301USA02081

PATIENT
  Age: 67 Year
  Sex: Female
  Weight: 64 kg

DRUGS (6)
  1. VIOXX [Suspect]
     Indication: FIBROMYALGIA
     Route: 048
     Dates: start: 19990301, end: 20020101
  2. VIOXX [Suspect]
     Route: 048
     Dates: end: 19990607
  3. VIOXX [Suspect]
     Indication: ARTHRITIS
     Route: 048
     Dates: start: 19990301, end: 20020101
  4. VIOXX [Suspect]
     Route: 048
     Dates: end: 19990607
  5. COUMADIN [Suspect]
     Indication: ANTICOAGULANT THERAPY
     Route: 065
     Dates: start: 20020101, end: 20020101
  6. COUMADIN [Suspect]
     Route: 065

REACTIONS (57)
  - ACQUIRED OESOPHAGEAL WEB [None]
  - ANXIETY [None]
  - AORTIC VALVE INCOMPETENCE [None]
  - APTYALISM [None]
  - ASTHENIA [None]
  - ATRIAL FLUTTER [None]
  - BLOOD CHOLESTEROL INCREASED [None]
  - BLOOD TRIGLYCERIDES INCREASED [None]
  - CHEST PAIN [None]
  - CONSTIPATION [None]
  - CONTUSION [None]
  - CORONARY ARTERY DISEASE [None]
  - DECREASED ACTIVITY [None]
  - DECREASED APPETITE [None]
  - DYSPEPSIA [None]
  - FALL [None]
  - FATIGUE [None]
  - GASTRIC ULCER [None]
  - GASTRITIS [None]
  - GASTROOESOPHAGEAL REFLUX DISEASE [None]
  - HAEMATOMA [None]
  - HAEMORRHAGE INTRACRANIAL [None]
  - HEADACHE [None]
  - HIATUS HERNIA [None]
  - HYPERTENSION [None]
  - HYPERTENSIVE HEART DISEASE [None]
  - HYPOTENSION [None]
  - INFLUENZA [None]
  - INTERVERTEBRAL DISC DEGENERATION [None]
  - INTERVERTEBRAL DISC DISORDER [None]
  - INTERVERTEBRAL DISC PROTRUSION [None]
  - JOINT INJURY [None]
  - LACUNAR INFARCTION [None]
  - LAXATIVE ABUSE [None]
  - MELANOSIS COLI [None]
  - MYOCARDIAL INFARCTION [None]
  - MYOCLONUS [None]
  - NAUSEA [None]
  - NECK PAIN [None]
  - NEUROPATHY PERIPHERAL [None]
  - OEDEMA PERIPHERAL [None]
  - OSTEOARTHRITIS [None]
  - PAIN [None]
  - PNEUMONIA [None]
  - PRURITUS [None]
  - RENAL FAILURE [None]
  - ROTATOR CUFF SYNDROME [None]
  - SINUS OPERATION [None]
  - SINUSITIS [None]
  - SKIN LESION [None]
  - SLEEP DISORDER [None]
  - SPINAL OSTEOARTHRITIS [None]
  - STOMACH DISCOMFORT [None]
  - SUBDURAL HAEMATOMA [None]
  - URINARY RETENTION [None]
  - VASCULITIS CEREBRAL [None]
  - WEIGHT DECREASED [None]
